FAERS Safety Report 19137834 (Version 4)
Quarter: 2021Q2

REPORT INFORMATION
  Report Type: Report from Study
  Country: None (occurrence: US)
  Receive Date: 20210414
  Receipt Date: 20210520
  Transmission Date: 20210717
  Serious: Yes (Hospitalization, Congenital Anomaly)
  Sender: FDA-Public Use
  Company Number: US-ABBVIE-21K-163-3853700-00

PATIENT
  Age: 41 Year
  Sex: Female
  Weight: 53.57 kg

DRUGS (13)
  1. XANAX [Concomitant]
     Active Substance: ALPRAZOLAM
     Indication: ANXIETY
  2. ESTRADIOL. [Concomitant]
     Active Substance: ESTRADIOL
     Indication: PRODUCT USED FOR UNKNOWN INDICATION
     Dates: start: 201909, end: 202010
  3. LETROZOLE. [Concomitant]
     Active Substance: LETROZOLE
     Indication: PRODUCT USED FOR UNKNOWN INDICATION
     Dates: start: 202102
  4. OVIDREL [Concomitant]
     Active Substance: CHORIOGONADOTROPIN ALFA
     Indication: PRODUCT USED FOR UNKNOWN INDICATION
     Dates: start: 20210224
  5. DOXYCYCLINE. [Concomitant]
     Active Substance: DOXYCYCLINE
     Indication: PRODUCT USED FOR UNKNOWN INDICATION
     Dates: start: 20210220, end: 20210224
  6. ORILISSA [Suspect]
     Active Substance: ELAGOLIX SODIUM
     Indication: ENDOMETRIOSIS
     Route: 048
     Dates: start: 20201110, end: 20210209
  7. TIZANIDINE. [Suspect]
     Active Substance: TIZANIDINE
     Indication: MUSCLE SPASMS
     Dosage: ONE TABLET 1?2 TIMES/MONTH
     Route: 048
     Dates: start: 2018
  8. IBUPROFEN. [Concomitant]
     Active Substance: IBUPROFEN
     Indication: LIMB INJURY
  9. TIZANIDINE. [Suspect]
     Active Substance: TIZANIDINE
     Indication: PELVIC PAIN
     Dosage: 1 TABLET TWICE/DAY FOR ABOUT 5 DAYS
     Route: 048
     Dates: start: 2017, end: 2018
  10. IBUPROFEN. [Concomitant]
     Active Substance: IBUPROFEN
     Indication: HEADACHE
     Dosage: ABOUT ONCE PER WEEK PRN
     Dates: start: 1991
  11. ORILISSA [Suspect]
     Active Substance: ELAGOLIX SODIUM
     Route: 048
     Dates: start: 20210315, end: 20210407
  12. VALIUM [Concomitant]
     Active Substance: DIAZEPAM
     Indication: ANXIETY
  13. PROGESTERONE. [Concomitant]
     Active Substance: PROGESTERONE
     Indication: PRODUCT USED FOR UNKNOWN INDICATION
     Dosage: PROGESTERONE VAGINALLY.
     Dates: start: 202102

REACTIONS (14)
  - Thirst [Recovering/Resolving]
  - Dysuria [Not Recovered/Not Resolved]
  - Drug-induced liver injury [Recovering/Resolving]
  - Hepato-lenticular degeneration [Unknown]
  - Hepatic enzyme increased [Recovering/Resolving]
  - Constipation [Recovering/Resolving]
  - Hepatitis viral [Unknown]
  - Acne [Not Recovered/Not Resolved]
  - Liver injury [Unknown]
  - Ascites [Not Recovered/Not Resolved]
  - Kayser-Fleischer ring [Unknown]
  - Hepatitis acute [Recovering/Resolving]
  - Nephrolithiasis [Unknown]
  - Rash [Recovered/Resolved]

NARRATIVE: CASE EVENT DATE: 2021
